FAERS Safety Report 14181390 (Version 4)
Quarter: 2019Q2

REPORT INFORMATION
  Report Type: Spontaneous
  Country: CA (occurrence: CA)
  Receive Date: 20171112
  Receipt Date: 20190529
  Transmission Date: 20190711
  Serious: Yes (Other)
  Sender: FDA-Public Use
  Company Number: CA-CONCORDIA PHARMACEUTICALS INC.-GSH201711-006334

PATIENT
  Age: 54 Year
  Sex: Female

DRUGS (1)
  1. HYDROXYCHLOROQUINE [Suspect]
     Active Substance: HYDROXYCHLOROQUINE
     Indication: SYSTEMIC LUPUS ERYTHEMATOSUS
     Dosage: (DOSE 6.6 MG/KG).
     Route: 065

REACTIONS (4)
  - Ocular toxicity [Unknown]
  - Cardiomyopathy [Recovering/Resolving]
  - Cardiac septal hypertrophy [Unknown]
  - Left ventricular hypertrophy [Unknown]
